FAERS Safety Report 20714624 (Version 1)
Quarter: 2022Q2

REPORT INFORMATION
  Report Type: Spontaneous
  Country: US (occurrence: None)
  Receive Date: 20220415
  Receipt Date: 20220415
  Transmission Date: 20220721
  Serious: Yes (Hospitalization)
  Sender: FDA-Public Use
  Company Number: None

PATIENT
  Age: 74 Year
  Sex: Female
  Weight: 76.1 kg

DRUGS (3)
  1. TAXOL [Suspect]
     Active Substance: PACLITAXEL
     Dates: end: 20220329
  2. PERTUZUMAB [Suspect]
     Active Substance: PERTUZUMAB
     Dates: end: 20220329
  3. HERCEPTIN [Suspect]
     Active Substance: TRASTUZUMAB
     Dates: end: 20220329

REACTIONS (3)
  - Fall [None]
  - Lower limb fracture [None]
  - Hip fracture [None]

NARRATIVE: CASE EVENT DATE: 20220411
